FAERS Safety Report 17956021 (Version 1)
Quarter: 2020Q2

REPORT INFORMATION
  Report Type: Spontaneous
  Country: US (occurrence: US)
  Receive Date: 20200629
  Receipt Date: 20200629
  Transmission Date: 20200714
  Serious: No
  Sender: FDA-Public Use
  Company Number: US-PFIZER INC-2020064680

PATIENT
  Age: 63 Year
  Sex: Female

DRUGS (1)
  1. SUTENT [Suspect]
     Active Substance: SUNITINIB MALATE
     Dosage: 37.5 MG, CYCLIC (TAKE 1 CAPSULE PO (ORAL) DAILY 2 WEEKS ON, THEN 1 WEEK OFF)
     Route: 048

REACTIONS (2)
  - Pain in extremity [Unknown]
  - Skin exfoliation [Unknown]
